FAERS Safety Report 23025697 (Version 1)
Quarter: 2023Q4

REPORT INFORMATION
  Report Type: Spontaneous
  Country: JP (occurrence: JP)
  Receive Date: 20231004
  Receipt Date: 20231004
  Transmission Date: 20240109
  Serious: Yes (Death, Hospitalization, Other)
  Sender: FDA-Public Use
  Company Number: JP-Merck Healthcare KGaA-2023476096

PATIENT
  Age: 77 Year
  Sex: Male

DRUGS (2)
  1. METGLUCO [Suspect]
     Active Substance: METFORMIN HYDROCHLORIDE
     Indication: Type 2 diabetes mellitus
     Route: 048
  2. METGLUCO [Suspect]
     Active Substance: METFORMIN HYDROCHLORIDE
     Route: 048

REACTIONS (3)
  - Pneumonia aspiration [Fatal]
  - COVID-19 [Not Recovered/Not Resolved]
  - Renal impairment [Not Recovered/Not Resolved]
